FAERS Safety Report 7427428-X (Version None)
Quarter: 2011Q2

REPORT INFORMATION
  Report Type: 
  Country: None (occurrence: None)
  Receive Date: 20110420
  Receipt Date: 20090903
  Transmission Date: 20111010
  Serious: Yes (Other)
  Sender: FDA-Public Use
  Company Number: DE-GENENTECH-316981

PATIENT
  Age: 76 Year
  Sex: Female

DRUGS (1)
  1. LUCENTIS [Suspect]
     Indication: MACULAR DEGENERATION
     Dosage: UNK
     Route: 031
     Dates: start: 20080826

REACTIONS (7)
  - OCULAR HYPERAEMIA [None]
  - DIZZINESS [None]
  - DEPRESSION [None]
  - VENOUS INJURY [None]
  - VISUAL ACUITY REDUCED [None]
  - SUICIDE ATTEMPT [None]
  - MALAISE [None]
